FAERS Safety Report 6067004-7 (Version None)
Quarter: 2009Q1

REPORT INFORMATION
  Report Type: 
  Country: None (occurrence: None)
  Receive Date: 20090205
  Receipt Date: 20090129
  Transmission Date: 20090719
  Serious: Yes (Hospitalization)
  Sender: FDA-Public Use
  Company Number: US-JNJFOC-20090104721

PATIENT
  Sex: Female

DRUGS (2)
  1. DURAGESIC-100 [Suspect]
     Route: 062
  2. DURAGESIC-100 [Suspect]
     Indication: PAIN
     Dosage: TWO 100?G/HR PATCHES
     Route: 062

REACTIONS (12)
  - APPLICATION SITE EROSION [None]
  - APPLICATION SITE VESICLES [None]
  - BACK DISORDER [None]
  - DRUG ADMINISTERED AT INAPPROPRIATE SITE [None]
  - INAPPROPRIATE SCHEDULE OF DRUG ADMINISTRATION [None]
  - INFECTION [None]
  - PAIN [None]
  - PRODUCT QUALITY ISSUE [None]
  - SPINAL DISORDER [None]
  - STRESS [None]
  - TREMOR [None]
  - WEIGHT DECREASED [None]
